FAERS Safety Report 16299581 (Version 17)
Quarter: 2022Q2

REPORT INFORMATION
  Report Type: Spontaneous
  Country: DE (occurrence: DE)
  Receive Date: 20190510
  Receipt Date: 20220623
  Transmission Date: 20220721
  Serious: Yes (Other)
  Sender: FDA-Public Use
  Company Number: DE-002147023-PHHY2019DE091441

PATIENT
  Sex: Female

DRUGS (12)
  1. LETROZOLE [Suspect]
     Active Substance: LETROZOLE
     Indication: Breast cancer metastatic
     Dosage: 2.5 MILLIGRAM (28 PROBABLY MEANT DAYS)
     Route: 048
     Dates: start: 20181226
  2. KISQALI [Suspect]
     Active Substance: RIBOCICLIB
     Indication: Breast cancer metastatic
     Dosage: 600 MILLIGRAM, (21 DAYS INTAKE, 7 DAYS PAUSE)
     Route: 048
     Dates: start: 20181227, end: 20190102
  3. KISQALI [Suspect]
     Active Substance: RIBOCICLIB
     Dosage: 600 MILLIGRAM,(DAILY DOSE), 21 DAYS INTAKE, THAN 7 DAYS PAUSE
     Route: 048
     Dates: start: 20190115, end: 20190203
  4. KISQALI [Suspect]
     Active Substance: RIBOCICLIB
     Dosage: 600 MILLIGRAM, ONCE A DAY (21 DAYS INTAKE, THEN 7 DAYS PAUSE)
     Route: 048
     Dates: start: 20190206, end: 20190305
  5. KISQALI [Suspect]
     Active Substance: RIBOCICLIB
     Dosage: 600 MILLIGRAM, ONCE A DAY (21 DAYS INTAKE, THEN 7 DAYS PAUSE)
     Route: 048
     Dates: start: 20190308, end: 20191009
  6. KISQALI [Suspect]
     Active Substance: RIBOCICLIB
     Dosage: 400 MILLIGRAM, ONCE A DAY (21 DAYS INTAKE, THEN 7 DAYS PAUSE)
     Route: 048
     Dates: start: 20191010, end: 20191106
  7. KISQALI [Suspect]
     Active Substance: RIBOCICLIB
     Dosage: 600 MILLIGRAM, ONCE A DAY (600 MG, QD (21 DAYS INTAKE, THEN 7 DAYS PAUSE)
     Route: 065
     Dates: start: 20191107
  8. KISQALI [Suspect]
     Active Substance: RIBOCICLIB
     Dosage: 600 MILLIGRAM, ONCE A DAY (21 DAYS INTAKE, THEN 7 DAYS PAUSE)
     Route: 065
     Dates: start: 20191025, end: 20201201
  9. KISQALI [Suspect]
     Active Substance: RIBOCICLIB
     Dosage: 600 MILLIGRAM, ONCE A DAY (21 DAYS INTAKE, THEN 7 DAYS PAUSE)
     Route: 065
     Dates: start: 20210209
  10. KISQALI [Suspect]
     Active Substance: RIBOCICLIB
     Dosage: 600 MILLIGRAM, ONCE A DAY (21 DAYS INTAKE, THEN 7 DAYS PAUSE)
     Route: 065
     Dates: start: 20210112, end: 20210208
  11. KISQALI [Suspect]
     Active Substance: RIBOCICLIB
     Dosage: 400 MILLIGRAM, ONCE A DAY (21 DAYS INTAKE, THEN 7 DAYS PAUSE)
     Route: 048
     Dates: start: 20191010, end: 20191024
  12. XGEVA [Concomitant]
     Active Substance: DENOSUMAB
     Indication: Product used for unknown indication
     Dosage: UNK
     Route: 065
     Dates: start: 20190722

REACTIONS (13)
  - Neutropenia [Recovering/Resolving]
  - Lymphopenia [Recovering/Resolving]
  - Leukopenia [Recovered/Resolved]
  - Polyneuropathy [Not Recovered/Not Resolved]
  - Osteoarthritis [Not Recovered/Not Resolved]
  - Alanine aminotransferase increased [Recovered/Resolved]
  - Gamma-glutamyltransferase increased [Recovering/Resolving]
  - Urinary tract infection [Recovered/Resolved]
  - Nasopharyngitis [Recovered/Resolved]
  - Pruritus [Not Recovered/Not Resolved]
  - Alopecia [Not Recovered/Not Resolved]
  - Posture abnormal [Not Recovered/Not Resolved]
  - Arthralgia [Not Recovered/Not Resolved]

NARRATIVE: CASE EVENT DATE: 20190115
